FAERS Safety Report 8842582 (Version 1)
Quarter: 2012Q4

REPORT INFORMATION
  Report Type: 
  Country: US (occurrence: US)
  Receive Date: 20121016
  Receipt Date: 20121016
  Transmission Date: 20130627
  Serious: Yes (Other)
  Sender: FDA-Public Use
  Company Number: US-ROCHE-1122271

PATIENT
  Age: 15 Year
  Sex: Male

DRUGS (2)
  1. NUTROPIN [Suspect]
     Indication: BODY HEIGHT BELOW NORMAL
     Route: 058
     Dates: start: 20030201
  2. NUTROPIN [Suspect]
     Dosage: dose was reduced.
     Route: 058

REACTIONS (1)
  - Left ventricular hypertrophy [Unknown]
